FAERS Safety Report 8128813-3 (Version None)
Quarter: 2012Q1

REPORT INFORMATION
  Report Type: 
  Country: None (occurrence: None)
  Receive Date: 20120210
  Receipt Date: 20110307
  Transmission Date: 20120608
  Serious: No
  Sender: FDA-Public Use
  Company Number: US-BRISTOL-MYERS SQUIBB COMPANY-15595291

PATIENT
  Age: 6 Year

DRUGS (1)
  1. ORENCIA [Suspect]
     Indication: JUVENILE ARTHRITIS

REACTIONS (3)
  - GASTROINTESTINAL PAIN [None]
  - NAUSEA [None]
  - VOMITING [None]
